FAERS Safety Report 6330197-8 (Version None)
Quarter: 2009Q3

REPORT INFORMATION
  Report Type: 
  Country: None (occurrence: None)
  Receive Date: 20090827
  Receipt Date: 20090817
  Transmission Date: 20100115
  Serious: Yes (Life-Threatening, Other)
  Sender: FDA-Public Use
  Company Number: CZ-RANBAXY-2009RR-26058

PATIENT
  Age: 33 Year
  Sex: Female
  Weight: 80 kg

DRUGS (15)
  1. ADRENALINE [Suspect]
     Indication: GENERAL ANAESTHESIA
     Dosage: 400 UG, UNK
     Route: 042
  2. MIDAZOLAM HCL [Suspect]
     Indication: GENERAL ANAESTHESIA
     Dosage: 5 MG, UNK
     Route: 042
  3. ROCURONIUM BROMIDE [Suspect]
     Indication: GENERAL ANAESTHESIA
     Dosage: 40 MG, UNK
  4. BISULEPIN [Suspect]
     Dosage: 1 MG, UNK
     Route: 042
  5. HYDROCORTISONE [Suspect]
     Dosage: 1000 MG, UNK
  6. HYDROCORTISONE [Suspect]
     Dosage: 100 MG, UNK
     Route: 042
  7. CALCIUM CHLORIDE 10% [Suspect]
     Dosage: 10 ML, UNK
     Route: 042
  8. SUFENTANIL [Concomitant]
     Indication: GENERAL ANAESTHESIA
     Dosage: 25 UG, UNK
  9. PROPOFOL [Concomitant]
     Indication: GENERAL ANAESTHESIA
     Dosage: 200 MG, UNK
  10. THEOPHYLLINE [Concomitant]
     Dosage: 240 MG, UNK
  11. THEOPHYLLINE [Concomitant]
     Dosage: 240 MG, UNK
     Route: 042
  12. SALBUTAMOL [Concomitant]
     Dosage: UNK
     Route: 007
  13. VECURONIUM BROMIDE [Concomitant]
     Dosage: 4 MG, UNK
     Route: 042
  14. NITRIC OXIDE [Concomitant]
     Indication: ANAESTHESIA
     Route: 045
  15. SEVOFLURANE [Concomitant]
     Indication: ANAESTHESIA

REACTIONS (2)
  - ANAPHYLACTIC REACTION [None]
  - DRUG INTERACTION [None]
